FAERS Safety Report 13854973 (Version 1)
Quarter: 2017Q3

REPORT INFORMATION
  Report Type: Spontaneous
  Country: CA (occurrence: CA)
  Receive Date: 20170810
  Receipt Date: 20170810
  Transmission Date: 20171127
  Serious: No
  Sender: FDA-Public Use
  Company Number: US-BRAINTREE LABORATORIES-160628

PATIENT
  Age: 74 Year
  Sex: Male
  Weight: 72.57 kg

DRUGS (1)
  1. GOLYTELY [Suspect]
     Active Substance: POLYETHYLENE GLYCOL 3350\POTASSIUM CHLORIDE\SODIUM BICARBONATE\SODIUM CHLORIDE\SODIUM SULFATE ANHYDROUS
     Indication: COLONOSCOPY
     Dosage: 0.95L
     Route: 048
     Dates: start: 20160821, end: 20160821

REACTIONS (1)
  - Nausea [None]

NARRATIVE: CASE EVENT DATE: 20160821
